FAERS Safety Report 10954786 (Version 2)
Quarter: 2015Q2

REPORT INFORMATION
  Report Type: Report from Study
  Country: US (occurrence: US)
  Receive Date: 20150325
  Receipt Date: 20150428
  Transmission Date: 20150821
  Serious: Yes (Hospitalization, Other)
  Sender: FDA-Public Use
  Company Number: US-ACTELION-A-NJ2015-114912

PATIENT
  Age: 79 Year
  Sex: Female

DRUGS (2)
  1. ASPIRIN. [Concomitant]
     Active Substance: ASPIRIN
  2. MACITENTAN [Suspect]
     Active Substance: MACITENTAN
     Indication: PULMONARY HYPERTENSION
     Dosage: 10 MG, QD
     Route: 048
     Dates: start: 201412

REACTIONS (18)
  - Cardiac failure [Unknown]
  - Aortic stenosis [Unknown]
  - Brain natriuretic peptide increased [Unknown]
  - Pneumonia [Unknown]
  - Hypertension [Unknown]
  - Abdominal distension [Unknown]
  - Weight increased [Unknown]
  - Blood albumin decreased [Unknown]
  - Atrial fibrillation [Unknown]
  - Renal failure [Unknown]
  - Hyponatraemia [Unknown]
  - Anaemia [Unknown]
  - Asthenia [Unknown]
  - Dysstasia [Unknown]
  - Dyspnoea [Unknown]
  - Orthopnoea [Unknown]
  - Oedema peripheral [Unknown]
  - Dyspnoea paroxysmal nocturnal [Unknown]
